FAERS Safety Report 21793235 (Version 4)
Quarter: 2023Q1

REPORT INFORMATION
  Report Type: Other
  Country: US (occurrence: None)
  Receive Date: 20221229
  Receipt Date: 20230119
  Transmission Date: 20230418
  Serious: No
  Sender: FDA-Public Use
  Company Number: US-ROCHE-3252630

PATIENT
  Age: 37 Year
  Sex: Female

DRUGS (1)
  1. OCREVUS [Suspect]
     Active Substance: OCRELIZUMAB
     Indication: Relapsing multiple sclerosis
     Dosage: INFUSE 300MG DAY 1 + DAY 15 THEN 600 MG EVERY 6 MONTHS
     Route: 042
     Dates: start: 20190709

REACTIONS (1)
  - COVID-19 [Recovered/Resolved]
